FAERS Safety Report 8031542-8 (Version None)
Quarter: 2012Q1

REPORT INFORMATION
  Report Type: 
  Country: None (occurrence: None)
  Receive Date: 20120109
  Receipt Date: 20111230
  Transmission Date: 20120608
  Serious: Yes (Other)
  Sender: FDA-Public Use
  Company Number: US-ASTRAZENECA-2010SE10195

PATIENT
  Age: 48 Year
  Sex: Male
  Weight: 95.3 kg

DRUGS (40)
  1. SEROQUEL [Suspect]
     Indication: BIPOLAR DISORDER
     Route: 048
     Dates: start: 20050101
  2. SEROQUEL [Suspect]
     Route: 048
     Dates: start: 20100101, end: 20100101
  3. GEMFIBROZIL [Concomitant]
     Indication: DIABETES MELLITUS
     Route: 048
  4. SEROQUEL [Suspect]
     Route: 048
     Dates: start: 20070101
  5. SEROQUEL [Suspect]
     Route: 048
     Dates: start: 20100101, end: 20100101
  6. SEROQUEL [Suspect]
     Route: 048
     Dates: start: 20100101
  7. DEXTROAMPHETAMINE [Concomitant]
     Indication: DEPRESSION
     Dosage: DAILY DOSAGE 5 MG-4 TABLETS, BID
     Route: 048
  8. GLIPERIDE [Concomitant]
     Indication: DIABETES MELLITUS
  9. SEROQUEL [Suspect]
     Indication: BIPOLAR I DISORDER
     Route: 048
     Dates: start: 20050101
  10. SEROQUEL [Suspect]
     Route: 048
     Dates: start: 20070101
  11. SEROQUEL [Suspect]
     Route: 048
     Dates: start: 20060101
  12. LISINOPRIL [Concomitant]
     Route: 048
  13. CYMBALTA [Concomitant]
     Indication: DEPRESSION
     Route: 048
  14. XANAX [Concomitant]
     Indication: ANXIETY
     Route: 048
  15. XANAX [Concomitant]
     Indication: PANIC ATTACK
     Route: 048
  16. SEROQUEL [Suspect]
     Route: 048
     Dates: start: 20050101
  17. SEROQUEL [Suspect]
     Route: 048
     Dates: start: 20070101
  18. SEROQUEL [Suspect]
     Route: 048
     Dates: start: 20090801, end: 20100101
  19. SEROQUEL [Suspect]
     Route: 048
     Dates: start: 20060101
  20. SEROQUEL [Suspect]
     Route: 048
     Dates: start: 20060101
  21. NIASPAN [Concomitant]
     Indication: HYPERCHOLESTEROLAEMIA
     Route: 048
  22. SPIRONOLACTONE [Concomitant]
  23. SEROQUEL [Suspect]
     Indication: NIGHTMARE
     Route: 048
     Dates: start: 20050101
  24. SEROQUEL [Suspect]
     Route: 048
     Dates: start: 20070101
  25. SEROQUEL [Suspect]
     Route: 048
     Dates: start: 20090801, end: 20100101
  26. SEROQUEL [Suspect]
     Route: 048
     Dates: start: 20100101, end: 20100101
  27. SEROQUEL [Suspect]
     Route: 048
     Dates: start: 20100101
  28. SEROQUEL [Suspect]
     Route: 048
     Dates: start: 20060101
  29. SEROQUEL [Suspect]
     Route: 048
     Dates: start: 20100101, end: 20100101
  30. SEROQUEL [Suspect]
     Route: 048
     Dates: start: 20100101
  31. METFORMIN HCL [Concomitant]
     Indication: DIABETES MELLITUS
     Route: 048
  32. GEMFIBROZIL [Concomitant]
     Indication: BLOOD CHOLESTEROL
     Route: 048
  33. DEXTROAMPHETAMINE [Concomitant]
     Indication: ATTENTION DEFICIT/HYPERACTIVITY DISORDER
     Dosage: DAILY DOSAGE 5 MG-4 TABLETS, BID
     Route: 048
  34. B VITAMIN [Concomitant]
  35. SEROQUEL [Suspect]
     Route: 048
     Dates: start: 20090801, end: 20100101
  36. SEROQUEL [Suspect]
     Route: 048
     Dates: start: 20090801, end: 20100101
  37. SEROQUEL [Suspect]
     Route: 048
     Dates: start: 20100101
  38. ALPRAZOLAM [Concomitant]
  39. IBUPROFEN (ADVIL) [Concomitant]
  40. GLIPIZIDE [Concomitant]
     Indication: BLOOD GLUCOSE DECREASED
     Route: 048

REACTIONS (19)
  - TYPE 2 DIABETES MELLITUS [None]
  - FEELING ABNORMAL [None]
  - SINUSITIS [None]
  - STRESS [None]
  - WRIST FRACTURE [None]
  - COMPRESSION FRACTURE [None]
  - PANIC DISORDER [None]
  - ANXIETY [None]
  - ANKLE FRACTURE [None]
  - MEMORY IMPAIRMENT [None]
  - BLOOD CHOLESTEROL INCREASED [None]
  - DEPRESSION [None]
  - BLOOD PRESSURE INCREASED [None]
  - BLOOD GLUCOSE INCREASED [None]
  - DRUG DOSE OMISSION [None]
  - BLOOD POTASSIUM INCREASED [None]
  - DISTURBANCE IN ATTENTION [None]
  - FALL [None]
  - SOMNOLENCE [None]
